FAERS Safety Report 19136821 (Version 1)
Quarter: 2021Q2

REPORT INFORMATION
  Report Type: Spontaneous
  Country: US (occurrence: US)
  Receive Date: 20210414
  Receipt Date: 20210414
  Transmission Date: 20210717
  Serious: No
  Sender: FDA-Public Use
  Company Number: US-GILEAD-2021-0524111

PATIENT
  Age: 5 Year
  Sex: Male

DRUGS (3)
  1. GUANFACINE. [Concomitant]
     Active Substance: GUANFACINE
  2. HARVONI [Suspect]
     Active Substance: LEDIPASVIR\SOFOSBUVIR
     Indication: CHRONIC HEPATITIS C
     Dosage: 1 PACKET, QD
     Route: 048
  3. OMEGA 3 [FISH OIL] [Concomitant]
     Active Substance: FISH OIL

REACTIONS (1)
  - Intentional dose omission [Not Recovered/Not Resolved]
